FAERS Safety Report 8350492-0 (Version None)
Quarter: 2012Q2

REPORT INFORMATION
  Report Type: 
  Country: None (occurrence: None)
  Receive Date: 20120510
  Receipt Date: 20120504
  Transmission Date: 20120825
  Serious: Yes (Hospitalization)
  Sender: FDA-Public Use
  Company Number: US-BAYER-2012-044660

PATIENT
  Age: 30 Year
  Sex: Female
  Weight: 131.52 kg

DRUGS (18)
  1. TINDAMAX [Concomitant]
     Dosage: 500 MG, UNK
     Route: 048
  2. DOXYCYCLINE [Concomitant]
     Dosage: 100 MG, UNK
     Route: 048
  3. SULFAMETHOXAZOLE + TRIMETHOPRIM [Concomitant]
     Dosage: 800/160
     Route: 048
  4. METRONIDAZOLE [Concomitant]
     Dosage: 500 MG, UNK
     Route: 048
  5. DIFLUCAN [Concomitant]
     Dosage: 200 MG, UNK
     Route: 048
     Dates: start: 20070815
  6. PHENERGAN [Concomitant]
     Dosage: 25 MG, UNK
     Route: 042
     Dates: start: 20070815
  7. ROCEPHIN [Concomitant]
     Dosage: 1 G, UNK
     Route: 042
     Dates: start: 20070815
  8. YASMIN [Suspect]
  9. CIPROFLOXACIN [Concomitant]
     Indication: URINARY TRACT INFECTION
     Dosage: UNK
     Dates: start: 20070827
  10. MOTRIN [Concomitant]
     Dosage: 800 MG, UNK
     Route: 048
  11. PRILOSEC [Concomitant]
     Dosage: 20 MG, UNK
     Route: 048
  12. XANAX [Concomitant]
     Dosage: 1 MG, UNK
     Route: 048
  13. TORADOL [Concomitant]
     Dosage: UNK
     Dates: start: 20070702
  14. VIBRAMYCIN [Concomitant]
     Dosage: 100 MG, UNK
     Route: 048
     Dates: start: 20070815
  15. DEMEROL [Concomitant]
     Dosage: 25 MG, UNK
     Route: 042
     Dates: start: 20070815
  16. FLEXERIL [Concomitant]
     Dosage: 10 MG, UNK
     Route: 048
     Dates: start: 20070626
  17. VICODIN [Concomitant]
     Dosage: 5/500 MG, UNK
     Route: 048
  18. PERCOCET [Concomitant]
     Dosage: 5/325 MG, UNK
     Route: 048
     Dates: start: 20070815

REACTIONS (1)
  - DEEP VEIN THROMBOSIS [None]
